FAERS Safety Report 12054698 (Version 1)
Quarter: 2016Q1

REPORT INFORMATION
  Report Type: Spontaneous
  Country: US (occurrence: US)
  Receive Date: 20160209
  Receipt Date: 20160209
  Transmission Date: 20160526
  Serious: No
  Sender: FDA-Public Use
  Company Number: US-ABBVIE-15P-163-1464241-00

PATIENT

DRUGS (2)
  1. HUMIRA [Suspect]
     Active Substance: ADALIMUMAB
     Indication: PSORIATIC ARTHROPATHY
  2. HUMIRA [Suspect]
     Active Substance: ADALIMUMAB
     Indication: CROHN^S DISEASE
     Route: 065
     Dates: start: 2008

REACTIONS (12)
  - Ear pain [Unknown]
  - Unevaluable event [Unknown]
  - Injection site discolouration [Unknown]
  - Migraine [Unknown]
  - Asthenia [Unknown]
  - Injection site pain [Unknown]
  - Mass [Unknown]
  - Injection site swelling [Unknown]
  - Acne [Unknown]
  - Otorrhoea [Unknown]
  - Fear [Unknown]
  - Injection site pain [Unknown]

NARRATIVE: CASE EVENT DATE: 2015
